FAERS Safety Report 19475911 (Version 2)
Quarter: 2021Q3

REPORT INFORMATION
  Report Type: Spontaneous
  Country: AR (occurrence: AR)
  Receive Date: 20210630
  Receipt Date: 20210713
  Transmission Date: 20211014
  Serious: Yes (Death, Other)
  Sender: FDA-Public Use
  Company Number: AR-PFIZER INC-2021732712

PATIENT
  Age: 15 Year

DRUGS (14)
  1. METHYLPREDNISOLONE SODIUM SUCCINATE. [Suspect]
     Active Substance: METHYLPREDNISOLONE SODIUM SUCCINATE
     Dosage: UNK, (3 PULSES)
  2. IMMUNOGLOBULIN HUMAN NORMAL [Suspect]
     Active Substance: HUMAN IMMUNOGLOBULIN G
     Indication: HENOCH-SCHONLEIN PURPURA NEPHRITIS
     Dosage: UNK, DAILY
     Route: 042
  3. METHYLPREDNISOLONE SODIUM SUCCINATE. [Suspect]
     Active Substance: METHYLPREDNISOLONE SODIUM SUCCINATE
     Dosage: UNK, (3 PULSES)
  4. BASILIXIMAB [Suspect]
     Active Substance: BASILIXIMAB
     Indication: HENOCH-SCHONLEIN PURPURA NEPHRITIS
     Dosage: UNK
  5. CYCLOPHOSPHAMIDE. [Suspect]
     Active Substance: CYCLOPHOSPHAMIDE
     Indication: HENOCH-SCHONLEIN PURPURA
     Dosage: UNK, MONTHLY
  6. MYCOPHENOLATE MOFETIL. [Suspect]
     Active Substance: MYCOPHENOLATE MOFETIL
     Indication: HENOCH-SCHONLEIN PURPURA NEPHRITIS
     Dosage: UNK
  7. METHYLPREDNISOLONE SODIUM SUCCINATE. [Suspect]
     Active Substance: METHYLPREDNISOLONE SODIUM SUCCINATE
     Dosage: UNK, (3 PULSES) AFTER 5 MONTHS
  8. METHYLPREDNISOLONE SODIUM SUCCINATE. [Suspect]
     Active Substance: METHYLPREDNISOLONE SODIUM SUCCINATE
     Indication: HENOCH-SCHONLEIN PURPURA
     Dosage: UNK, (3 PULSES)
  9. ECULIZUMAB [Suspect]
     Active Substance: ECULIZUMAB
     Indication: HENOCH-SCHONLEIN PURPURA
     Dosage: UNK
  10. MEPREDNISONE [Suspect]
     Active Substance: MEPREDNISONE
     Indication: HENOCH-SCHONLEIN PURPURA
     Dosage: UNK
  11. TACROLIMUS. [Suspect]
     Active Substance: TACROLIMUS
     Indication: HENOCH-SCHONLEIN PURPURA NEPHRITIS
     Dosage: UNK
  12. METHYLPREDNISOLONE SODIUM SUCCINATE. [Suspect]
     Active Substance: METHYLPREDNISOLONE SODIUM SUCCINATE
     Dosage: UNK
  13. RITUXIMAB. [Suspect]
     Active Substance: RITUXIMAB
     Indication: HENOCH-SCHONLEIN PURPURA NEPHRITIS
     Dosage: UNK
  14. METHYLPREDNISOLONE SODIUM SUCCINATE. [Suspect]
     Active Substance: METHYLPREDNISOLONE SODIUM SUCCINATE
     Dosage: UNK

REACTIONS (5)
  - End stage renal disease [Fatal]
  - Enteritis [Unknown]
  - Sepsis [Fatal]
  - Drug ineffective [Fatal]
  - Necrotising colitis [Unknown]
